FAERS Safety Report 19826976 (Version 1)
Quarter: 2021Q3

REPORT INFORMATION
  Report Type: Report from Study
  Country: US (occurrence: US)
  Receive Date: 20210914
  Receipt Date: 20210914
  Transmission Date: 20211014
  Serious: Yes (Other)
  Sender: FDA-Public Use
  Company Number: US-SA-2021SA295654

PATIENT
  Age: 47 Year
  Sex: Male

DRUGS (1)
  1. THYMOGLOBULIN [Suspect]
     Active Substance: LAPINE T-LYMPHOCYTE IMMUNE GLOBULIN
     Indication: RENAL DISORDER PROPHYLAXIS
     Dosage: 1.5 MG/KG, TOTAL,4 TIMES
     Route: 041

REACTIONS (2)
  - Kidney transplant rejection [Unknown]
  - Delayed graft function [Unknown]
